FAERS Safety Report 15652772 (Version 7)
Quarter: 2019Q3

REPORT INFORMATION
  Report Type: Report from Study
  Country: US (occurrence: US)
  Receive Date: 20181123
  Receipt Date: 20190722
  Transmission Date: 20191004
  Serious: Yes (Other)
  Sender: FDA-Public Use
  Company Number: PHHY2017US120666

PATIENT
  Age: 35 Year
  Sex: Female

DRUGS (3)
  1. GILENYA [Suspect]
     Active Substance: FINGOLIMOD HYDROCHLORIDE
     Dosage: 0.5 MG, QD
     Route: 048
     Dates: start: 20170710
  2. METHYLPREDNISOLONE. [Concomitant]
     Active Substance: METHYLPREDNISOLONE
     Indication: MULTIPLE SCLEROSIS RELAPSE
     Dosage: UNK
     Route: 065
     Dates: start: 20190129, end: 20190202
  3. GILENYA [Suspect]
     Active Substance: FINGOLIMOD HYDROCHLORIDE
     Indication: MULTIPLE SCLEROSIS
     Dosage: UNK UNK, QD
     Route: 048

REACTIONS (23)
  - Gardnerella infection [Recovered/Resolved]
  - Anxiety [Recovered/Resolved]
  - Diplopia [Recovered/Resolved]
  - Abdominal pain [Recovered/Resolved]
  - Intervertebral disc degeneration [Unknown]
  - Pelvic inflammatory disease [Recovered/Resolved]
  - Vomiting [Unknown]
  - Gait disturbance [Recovered/Resolved]
  - Headache [Recovered/Resolved]
  - Hemiparesis [Recovered/Resolved]
  - Lentigo [Unknown]
  - Costochondritis [Recovered/Resolved]
  - Flank pain [Recovered/Resolved]
  - Insomnia [Recovered/Resolved]
  - Lymphocyte count decreased [Not Recovered/Not Resolved]
  - Oral herpes [Unknown]
  - Hypoaesthesia [Unknown]
  - Melanocytic naevus [Unknown]
  - Fibrous histiocytoma [Recovered/Resolved]
  - Wound [Recovered/Resolved]
  - Ocular discomfort [Recovered/Resolved]
  - Fatigue [Recovered/Resolved]
  - Feeling abnormal [Unknown]

NARRATIVE: CASE EVENT DATE: 20170703
